FAERS Safety Report 8486429-3 (Version None)
Quarter: 2012Q3

REPORT INFORMATION
  Report Type: 
  Country: None (occurrence: None)
  Receive Date: 20120703
  Receipt Date: 20120619
  Transmission Date: 20120928
  Serious: Yes (Other)
  Sender: FDA-Public Use
  Company Number: CHPA2012US011161

PATIENT
  Sex: Female

DRUGS (2)
  1. EXCEDRIN BACK \+ BODY CAPLETS [Suspect]
     Dosage: 1 DF, 4-5 DAYS A WEEK PRN
     Route: 048
  2. EXCEDRIN BACK \+ BODY CAPLETS [Suspect]
     Indication: ARTHRITIS
     Dosage: 1 DF, 4-5 DAYS A WEEK PRN
     Route: 048

REACTIONS (4)
  - VERTIGO [None]
  - UNDERDOSE [None]
  - LOSS OF CONSCIOUSNESS [None]
  - ABDOMINAL DISTENSION [None]
